FAERS Safety Report 21225662 (Version 1)
Quarter: 2022Q3

REPORT INFORMATION
  Report Type: Spontaneous
  Country: US (occurrence: US)
  Receive Date: 20220818
  Receipt Date: 20220818
  Transmission Date: 20221026
  Serious: Yes (Other)
  Sender: FDA-Public Use
  Company Number: US-SPECGX-T202201763

PATIENT
  Age: 18 Year
  Sex: Male

DRUGS (2)
  1. MORPHINE [Suspect]
     Active Substance: MORPHINE
     Indication: Product used for unknown indication
     Dosage: UNK
     Route: 045
  2. ALCOHOL [Suspect]
     Active Substance: ALCOHOL
     Indication: Product used for unknown indication
     Dosage: UNK
     Route: 065

REACTIONS (15)
  - Loss of consciousness [Recovered/Resolved]
  - Deafness [Recovered/Resolved]
  - White blood cell count increased [Unknown]
  - Blood creatine phosphokinase increased [Unknown]
  - Aspartate aminotransferase increased [Unknown]
  - Alanine aminotransferase increased [Unknown]
  - Blood creatinine increased [Unknown]
  - Blood lactic acid increased [Unknown]
  - Blood potassium increased [Unknown]
  - Anion gap increased [Unknown]
  - Hypotension [Recovered/Resolved]
  - Drug abuse [Unknown]
  - Sinus tachycardia [Recovered/Resolved]
  - Hyperhidrosis [Unknown]
  - Product use issue [Unknown]
